FAERS Safety Report 18500480 (Version 3)
Quarter: 2020Q4

REPORT INFORMATION
  Report Type: Report from Study
  Country: None (occurrence: BE)
  Receive Date: 20201113
  Receipt Date: 20201203
  Transmission Date: 20210114
  Serious: Yes (Hospitalization)
  Sender: FDA-Public Use
  Company Number: BE-ABBVIE-20K-013-3645397-00

PATIENT
  Age: 81 Year
  Sex: Female
  Weight: 70 kg

DRUGS (9)
  1. DUODOPA [Suspect]
     Active Substance: CARBIDOPA\LEVODOPA
     Dosage: MD= 8.0 ML, CD= 2.5 ML/HR DURING 16HRS, ED= 1.5 ML
     Route: 050
     Dates: start: 20200723, end: 202011
  2. INSULINE NOVOMIX [Concomitant]
     Indication: PRODUCT USED FOR UNKNOWN INDICATION
     Dosage: 12 UNITS ONCE PER DAY AND 10 UNITS ONCE PER DAY
  3. ASAFLOW [Concomitant]
     Active Substance: ASPIRIN
     Indication: PRODUCT USED FOR UNKNOWN INDICATION
  4. ASAFLOW [Concomitant]
     Active Substance: ASPIRIN
  5. DUODOPA [Suspect]
     Active Substance: CARBIDOPA\LEVODOPA
     Indication: PARKINSON^S DISEASE
     Dosage: UNKNOWN DOSAGES
     Route: 050
     Dates: start: 20150525, end: 20200723
  6. DUODOPA [Suspect]
     Active Substance: CARBIDOPA\LEVODOPA
     Dosage: MD= 8.0 ML, CD= 2.5 ML/HR DURING 16HRS, ED= 1.5 ML
     Route: 050
     Dates: start: 202011
  7. PANTOMED [Concomitant]
     Indication: PRODUCT USED FOR UNKNOWN INDICATION
  8. SIMVASTATINE EG [Concomitant]
     Active Substance: SIMVASTATIN
     Indication: PRODUCT USED FOR UNKNOWN INDICATION
  9. DUODOPA [Suspect]
     Active Substance: CARBIDOPA\LEVODOPA
     Dosage: MD= 8.0 ML, CD= 2.5 ML/HR DURING 16HRS, ED= 1.5 ML
     Route: 050
     Dates: start: 202011, end: 202011

REACTIONS (4)
  - Hypoglycaemia [Not Recovered/Not Resolved]
  - Device dislocation [Recovered/Resolved]
  - COVID-19 [Not Recovered/Not Resolved]
  - Off label use [Recovered/Resolved]

NARRATIVE: CASE EVENT DATE: 202010
